FAERS Safety Report 23424218 (Version 1)
Quarter: 2024Q1

REPORT INFORMATION
  Report Type: Spontaneous
  Country: RU (occurrence: RU)
  Receive Date: 20240120
  Receipt Date: 20240120
  Transmission Date: 20240410
  Serious: Yes (Death, Other)
  Sender: FDA-Public Use
  Company Number: RU-AMGEN-RUSSP2024011066

PATIENT

DRUGS (11)
  1. BLINATUMOMAB [Suspect]
     Active Substance: BLINATUMOMAB
     Indication: Acute lymphocytic leukaemia
     Dosage: 28 MICROGRAM, QD (3-5 COURSES)
     Route: 042
  2. DASATINIB [Concomitant]
     Active Substance: DASATINIB
     Dosage: 140 MILLIGRAM, QD
     Route: 065
  3. TRETINOIN [Concomitant]
     Active Substance: TRETINOIN
     Dosage: 45 MILLIGRAM/M^2, QD
     Route: 065
  4. PONATINIB [Concomitant]
     Active Substance: PONATINIB
     Dosage: 45 MILLIGRAM, QD
     Route: 065
  5. METHOTREXATE [Concomitant]
     Active Substance: METHOTREXATE
     Dosage: UNK
     Route: 029
  6. DEXAMETHASONE [Concomitant]
     Active Substance: DEXAMETHASONE
     Dosage: UNK
     Route: 065
  7. CYTARABINE [Concomitant]
     Active Substance: CYTARABINE
     Dosage: UNK
     Route: 065
  8. SORAFENIB [Concomitant]
     Active Substance: SORAFENIB
     Dosage: 800 MILLIGRAM, QD
     Route: 065
  9. RUXOLITINIB [Concomitant]
     Active Substance: RUXOLITINIB
     Dosage: 30 MILLIGRAM, QD
     Route: 065
  10. BOSUTINIB [Concomitant]
     Active Substance: BOSUTINIB
     Dosage: UNK
     Route: 065
  11. NILOTINIB [Concomitant]
     Active Substance: NILOTINIB
     Dosage: UNK
     Route: 065

REACTIONS (10)
  - Acute lymphocytic leukaemia [Fatal]
  - Infection in an immunocompromised host [Fatal]
  - Acute lymphocytic leukaemia recurrent [Unknown]
  - Intestinal haemorrhage [Unknown]
  - Hypogammaglobulinaemia [Unknown]
  - Cytomegalovirus colitis [Unknown]
  - Pleural effusion [Unknown]
  - Lung infiltration [Unknown]
  - Diarrhoea [Recovered/Resolved]
  - Pyrexia [Unknown]
